FAERS Safety Report 5403514-0 (Version None)
Quarter: 2007Q3

REPORT INFORMATION
  Report Type: 
  Country: None (occurrence: None)
  Receive Date: 20070713
  Receipt Date: 20070423
  Transmission Date: 20080115
  Serious: Yes (Hospitalization, Other)
  Sender: FDA-Public Use
  Company Number: US-JNJFOC-20060601813

PATIENT
  Age: 22 Year
  Sex: Female
  Weight: 72.1219 kg

DRUGS (4)
  1. ORTHO EVRA [Suspect]
     Indication: CONTRACEPTION
     Dosage: TRASDERMAL
     Route: 062
     Dates: start: 20050731, end: 20060303
  2. HUMALOG INSULIN (INSULIN LISPRO) [Concomitant]
  3. INSULIN (INSULIN) [Concomitant]
  4. VYTORIN [Concomitant]

REACTIONS (1)
  - PULMONARY EMBOLISM [None]
